FAERS Safety Report 8561576 (Version 2)
Quarter: 2012Q4

REPORT INFORMATION
  Report Type: 
  Country: US (occurrence: US)
  Receive Date: 20120515
  Receipt Date: 20120913
  Transmission Date: 20130627
  Serious: No
  Sender: FDA-Public Use
  Company Number: US-BIOGENIDEC-2012BI016306

PATIENT
  Age: 37 Year
  Sex: Male

DRUGS (2)
  1. TYSABRI [Suspect]
     Indication: MULTIPLE SCLEROSIS
     Route: 042
     Dates: start: 20100517
  2. AVONEX [Concomitant]
     Indication: MULTIPLE SCLEROSIS
     Route: 030
     Dates: start: 20000901

REACTIONS (6)
  - Tremor [Recovered/Resolved]
  - Muscle spasticity [Not Recovered/Not Resolved]
  - Sleep disorder [Recovered/Resolved]
  - Anxiety [Unknown]
  - Fatigue [Recovered/Resolved]
  - Multiple sclerosis relapse [Unknown]
